FAERS Safety Report 4577651-7 (Version None)
Quarter: 2005Q1

REPORT INFORMATION
  Report Type: 
  Country: None (occurrence: None)
  Receive Date: 20050210
  Receipt Date: 20041115
  Transmission Date: 20050727
  Serious: Yes (Hospitalization)
  Sender: FDA-Public Use
  Company Number: DE-MERCK-0411DEU00329

PATIENT
  Age: 80 Year
  Sex: Female
  Weight: 67 kg

DRUGS (1)
  1. VIOXX [Suspect]
     Indication: POLYARTHRITIS
     Route: 048
     Dates: start: 20011015

REACTIONS (7)
  - CORONARY ARTERY DISEASE [None]
  - CORONARY ARTERY STENOSIS [None]
  - DIABETES MELLITUS [None]
  - HYPERTENSION [None]
  - HYPERTENSIVE CRISIS [None]
  - HYPERTENSIVE HEART DISEASE [None]
  - LIPID METABOLISM DISORDER [None]
